FAERS Safety Report 5524196-3 (Version None)
Quarter: 2007Q4

REPORT INFORMATION
  Report Type: 
  Country: None (occurrence: None)
  Receive Date: 20071121
  Receipt Date: 20071115
  Transmission Date: 20080405
  Serious: Yes (Disabling, Other)
  Sender: FDA-Public Use
  Company Number: JP-PFIZER INC-2007093642

PATIENT
  Sex: Female
  Weight: 52 kg

DRUGS (11)
  1. LIPITOR [Suspect]
     Indication: HYPERCHOLESTEROLAEMIA
     Route: 048
     Dates: start: 20061128, end: 20071101
  2. LIVALO [Concomitant]
     Indication: HYPERCHOLESTEROLAEMIA
     Route: 048
     Dates: start: 20040312, end: 20041011
  3. VALSARTAN [Concomitant]
     Route: 048
     Dates: start: 20070803, end: 20071114
  4. PANALDINE [Concomitant]
     Route: 048
  5. DEPAS [Concomitant]
     Route: 048
     Dates: start: 20061021, end: 20071101
  6. PLETAL [Concomitant]
     Route: 048
     Dates: start: 20061118, end: 20071101
  7. LOXOPROFEN SODIUM [Concomitant]
     Route: 048
     Dates: start: 20061228, end: 20071101
  8. SELBEX [Concomitant]
     Route: 048
  9. KAKKON-TO [Concomitant]
     Route: 048
     Dates: start: 20061021, end: 20071101
  10. ACTONEL [Concomitant]
     Route: 048
     Dates: start: 20061228, end: 20071101
  11. MYONAL [Concomitant]
     Route: 048
     Dates: start: 20061228, end: 20071101

REACTIONS (1)
  - WHITE BLOOD CELL COUNT DECREASED [None]
